FAERS Safety Report 18557941 (Version 1)
Quarter: 2020Q4

REPORT INFORMATION
  Report Type: Spontaneous
  Country: GB (occurrence: GB)
  Receive Date: 20201130
  Receipt Date: 20201130
  Transmission Date: 20210114
  Serious: Yes (Hospitalization)
  Sender: FDA-Public Use
  Company Number: GB-AUROBINDO-AUR-APL-2020-058501

PATIENT
  Age: 69 Year
  Sex: Male
  Weight: 122 kg

DRUGS (9)
  1. RIVAROXABAN [Suspect]
     Active Substance: RIVAROXABAN
     Indication: PULMONARY EMBOLISM
     Dosage: 30 MILLIGRAM, ONCE A DAY
     Route: 048
     Dates: start: 20200911
  2. ALOGLIPTIN. [Concomitant]
     Active Substance: ALOGLIPTIN
     Indication: PRODUCT USED FOR UNKNOWN INDICATION
     Dosage: UNK
     Route: 065
  3. LOSARTAN POTASSIUM. [Concomitant]
     Active Substance: LOSARTAN POTASSIUM
     Indication: PRODUCT USED FOR UNKNOWN INDICATION
     Dosage: UNK
     Route: 065
  4. AMLODIPINE [Concomitant]
     Active Substance: AMLODIPINE BESYLATE
     Indication: PRODUCT USED FOR UNKNOWN INDICATION
     Dosage: UNK
     Route: 065
  5. NAPROXEN. [Suspect]
     Active Substance: NAPROXEN
     Indication: PAIN IN EXTREMITY
     Dosage: 500 MILLIGRAM (UNCLEAR. OCCASIONAL)
     Route: 048
     Dates: start: 20200910, end: 20201002
  6. GLICLAZIDE [Concomitant]
     Active Substance: GLICLAZIDE
     Indication: PRODUCT USED FOR UNKNOWN INDICATION
     Dosage: UNK
     Route: 065
  7. FLUCONAZOLE. [Suspect]
     Active Substance: FLUCONAZOLE
     Indication: PRODUCT USED FOR UNKNOWN INDICATION
     Dosage: 150 MILLIGRAM STAT
     Route: 048
  8. EMPAGLIFLOZIN [Concomitant]
     Active Substance: EMPAGLIFLOZIN
     Indication: PRODUCT USED FOR UNKNOWN INDICATION
     Dosage: UNK
     Route: 065
  9. IBUPROFEN. [Suspect]
     Active Substance: IBUPROFEN
     Indication: PAIN IN EXTREMITY
     Dosage: 3 DOSAGE FORM, ONCE A DAY (APPLY)
     Route: 061
     Dates: start: 20200910

REACTIONS (1)
  - Application site haematoma [Recovering/Resolving]

NARRATIVE: CASE EVENT DATE: 20200921
